FAERS Safety Report 7759180-2 (Version None)
Quarter: 2011Q3

REPORT INFORMATION
  Report Type: 
  Country: None (occurrence: None)
  Receive Date: 20110919
  Receipt Date: 20110915
  Transmission Date: 20111222
  Serious: Yes (Death, Hospitalization)
  Sender: FDA-Public Use
  Company Number: PHHY2011CA41678

PATIENT
  Sex: Female

DRUGS (1)
  1. SANDOSTATIN LAR [Suspect]
     Indication: OVARIAN NEOPLASM
     Dosage: 20 MG, QMO
     Route: 030
     Dates: start: 20110316

REACTIONS (5)
  - DIARRHOEA [None]
  - NAUSEA [None]
  - DEATH [None]
  - VOMITING [None]
  - MUSCLE SPASMS [None]
